FAERS Safety Report 4747655-X (Version None)
Quarter: 2005Q3

REPORT INFORMATION
  Report Type: 
  Country: None (occurrence: None)
  Receive Date: 20050818
  Receipt Date: 20050425
  Transmission Date: 20060218
  Serious: No
  Sender: FDA-Public Use
  Company Number: US-BRISTOL-MYERS SQUIBB COMPANY-12945135

PATIENT
  Age: 56 Year
  Sex: Male
  Weight: 84 kg

DRUGS (6)
  1. METFORMIN HCL [Suspect]
     Indication: PROSTATITIS
     Dates: start: 20050201
  2. TEQUIN [Suspect]
     Indication: PROSTATITIS
  3. SEPTRA DS [Suspect]
     Indication: PROSTATITIS
  4. CIPROFLOXACIN HCL [Suspect]
     Indication: PROSTATITIS
  5. DOXYCYCLINE [Suspect]
     Indication: PROSTATITIS
  6. TEMAZEPAM [Concomitant]

REACTIONS (3)
  - ERYTHEMA [None]
  - PARAESTHESIA [None]
  - PRURITUS [None]
